FAERS Safety Report 9725575 (Version 1)
Quarter: 2013Q4

REPORT INFORMATION
  Report Type: Spontaneous
  Country: FR (occurrence: FR)
  Receive Date: 20131203
  Receipt Date: 20131203
  Transmission Date: 20140711
  Serious: Yes (Hospitalization)
  Sender: FDA-Public Use
  Company Number: FR-SA-2013SA121845

PATIENT
  Age: 78 Year
  Sex: Male

DRUGS (4)
  1. LASILIX [Suspect]
     Indication: PRODUCT USED FOR UNKNOWN INDICATION
     Dosage: DOSE:1 UNIT(S)
     Route: 048
  2. VALSARTAN [Suspect]
     Indication: PRODUCT USED FOR UNKNOWN INDICATION
     Dosage: DOSE:1 UNIT(S)
     Route: 048
     Dates: end: 20131019
  3. PARIET [Concomitant]
  4. LEVOTHYROX [Concomitant]

REACTIONS (6)
  - Fall [Recovered/Resolved]
  - Malaise [Recovered/Resolved]
  - Muscular weakness [Recovered/Resolved]
  - Orthostatic hypotension [Recovered/Resolved]
  - Dizziness [Recovered/Resolved]
  - Vision blurred [Recovered/Resolved]
